FAERS Safety Report 8925408 (Version 3)
Quarter: 2014Q1

REPORT INFORMATION
  Report Type: Spontaneous
  Country: US (occurrence: US)
  Receive Date: 20121126
  Receipt Date: 20140120
  Transmission Date: 20141002
  Serious: Yes (Other)
  Sender: FDA-Public Use
  Company Number: US-MILLENNIUM PHARMACEUTICALS, INC.-2012-08279

PATIENT
  Sex: Male
  Weight: 76.64 kg

DRUGS (1)
  1. VELCADE [Suspect]
     Indication: PLASMA CELL MYELOMA
     Dosage: 2.5 MG, 1/WEEK(FRIDAY)
     Route: 042
     Dates: start: 20120618, end: 20121116

REACTIONS (2)
  - Sexual dysfunction [Unknown]
  - Oropharyngeal pain [Not Recovered/Not Resolved]
